FAERS Safety Report 13552848 (Version 1)
Quarter: 2017Q2

REPORT INFORMATION
  Report Type: Other
  Country: CA (occurrence: CA)
  Receive Date: 20170517
  Receipt Date: 20170517
  Transmission Date: 20170830
  Serious: Yes (Other)
  Sender: FDA-Public Use
  Company Number: CA-APOTEX-2017AP011805

PATIENT
  Age: 74 Year
  Sex: Female

DRUGS (1)
  1. APO-DILTIAZ CD [Suspect]
     Active Substance: DILTIAZEM HYDROCHLORIDE
     Indication: HYPERTENSION
     Dosage: 1 DF, QD
     Route: 048

REACTIONS (4)
  - Lip swelling [Recovered/Resolved]
  - Urticaria [Recovered/Resolved]
  - Type I hypersensitivity [Recovered/Resolved]
  - Swollen tongue [Recovered/Resolved]
